FAERS Safety Report 4819559-5 (Version None)
Quarter: 2005Q4

REPORT INFORMATION
  Report Type: 
  Country: None (occurrence: None)
  Receive Date: 20051102
  Receipt Date: 20051021
  Transmission Date: 20060501
  Serious: Yes (Other)
  Sender: FDA-Public Use
  Company Number: US-2005-022083

PATIENT
  Age: 45 Year
  Sex: Female

DRUGS (2)
  1. BETASERON [Suspect]
     Indication: MULTIPLE SCLEROSIS
     Dosage: MIU, EVERY 2D, SUBCUTANEOUS; 6 MIU, EVERY 2D
     Route: 058
     Dates: start: 20050913, end: 20051010
  2. BETASERON [Suspect]
     Indication: MULTIPLE SCLEROSIS
     Dosage: MIU, EVERY 2D, SUBCUTANEOUS; 6 MIU, EVERY 2D
     Route: 058
     Dates: start: 20051011

REACTIONS (8)
  - ABDOMINAL PAIN UPPER [None]
  - APHAGIA [None]
  - DIARRHOEA [None]
  - LOSS OF CONSCIOUSNESS [None]
  - MALAISE [None]
  - NAUSEA [None]
  - ORAL INTAKE REDUCED [None]
  - WEIGHT DECREASED [None]
